FAERS Safety Report 4992750-3 (Version None)
Quarter: 2006Q1

REPORT INFORMATION
  Report Type: 
  Country: None (occurrence: None)
  Receive Date: 20060316
  Receipt Date: 20050607
  Transmission Date: 20060701
  Serious: No
  Sender: FDA-Public Use
  Company Number: 05H-163-0300435-00

PATIENT
  Sex: Male

DRUGS (1)
  1. HEPARIN SODIUM 25,000 UNITS IN DEXTROSE 5% [Suspect]
     Dosage: 500 ML/HR, CONTINOUS, INTRAVENOUS
     Route: 042
     Dates: start: 20050428, end: 20050428

REACTIONS (3)
  - ACTIVATED PARTIAL THROMBOPLASTIN TIME PROLONGED [None]
  - HAEMATOMA [None]
  - MEDICATION ERROR [None]
